FAERS Safety Report 17563506 (Version 1)
Quarter: 2020Q1

REPORT INFORMATION
  Report Type: Report from Study
  Country: JP (occurrence: JP)
  Receive Date: 20200320
  Receipt Date: 20200320
  Transmission Date: 20200409
  Serious: Yes (Other)
  Sender: FDA-Public Use
  Company Number: JP-ROCHE-2570376

PATIENT
  Age: 69 Year
  Sex: Male

DRUGS (1)
  1. ATEZOLIZUMAB. [Suspect]
     Active Substance: ATEZOLIZUMAB
     Indication: ADENOCARCINOMA
     Route: 041
     Dates: start: 201804

REACTIONS (4)
  - Upper gastrointestinal haemorrhage [Unknown]
  - Liver injury [Unknown]
  - Pyrexia [Unknown]
  - Tumour pseudoprogression [Unknown]
